FAERS Safety Report 17568270 (Version 1)
Quarter: 2020Q1

REPORT INFORMATION
  Report Type: Spontaneous
  Country: US (occurrence: US)
  Receive Date: 20200320
  Receipt Date: 20200320
  Transmission Date: 20200409
  Serious: No
  Sender: FDA-Public Use
  Company Number: US-TAKEDA-2020TUS014962

PATIENT
  Sex: Male

DRUGS (24)
  1. PROCHLORPERAZ [Concomitant]
     Active Substance: PROCHLORPERAZINE MALEATE
  2. RAMIPRIL. [Concomitant]
     Active Substance: RAMIPRIL
  3. ATORVASTATIN [Concomitant]
     Active Substance: ATORVASTATIN
  4. METFORMIN [Concomitant]
     Active Substance: METFORMIN HYDROCHLORIDE
  5. NINLARO [Suspect]
     Active Substance: IXAZOMIB CITRATE
     Indication: PLASMA CELL MYELOMA
     Dosage: 3 MILLIGRAM
     Route: 048
     Dates: start: 20200309
  6. ESCITALOPRAM [Concomitant]
     Active Substance: ESCITALOPRAM OXALATE
  7. TAMSULOSIN [Concomitant]
     Active Substance: TAMSULOSIN
  8. ACYCLOVIR                          /00587301/ [Concomitant]
     Active Substance: ACYCLOVIR
  9. VELCADE [Suspect]
     Active Substance: BORTEZOMIB
     Indication: PRODUCT USED FOR UNKNOWN INDICATION
     Dosage: UNK
     Route: 065
  10. ERGOCALCIFEROL. [Concomitant]
     Active Substance: ERGOCALCIFEROL
  11. FENOFIBRATE. [Concomitant]
     Active Substance: FENOFIBRATE
  12. FUROSEMIDE. [Concomitant]
     Active Substance: FUROSEMIDE
  13. OMEPRAZOLE. [Concomitant]
     Active Substance: OMEPRAZOLE
  14. CHLORTHALIDON [Concomitant]
     Active Substance: CHLORTHALIDONE
  15. DILTIAZEM. [Concomitant]
     Active Substance: DILTIAZEM
  16. LANTUS [Concomitant]
     Active Substance: INSULIN GLARGINE
  17. CYANOCOBALAMIN. [Concomitant]
     Active Substance: CYANOCOBALAMIN
  18. FERROUS                            /00023501/ [Concomitant]
  19. GLIPIZIDE. [Concomitant]
     Active Substance: GLIPIZIDE
  20. FAMOTIDINE. [Concomitant]
     Active Substance: FAMOTIDINE
  21. GABAPENTIN. [Concomitant]
     Active Substance: GABAPENTIN
  22. NOVOLOG [Concomitant]
     Active Substance: INSULIN ASPART
  23. RANITIDINE. [Concomitant]
     Active Substance: RANITIDINE
  24. ASPIRIN                            /00002701/ [Concomitant]
     Active Substance: ASPIRIN

REACTIONS (2)
  - Headache [Unknown]
  - Dizziness [Unknown]
